FAERS Safety Report 6240966-0 (Version None)
Quarter: 2009Q2

REPORT INFORMATION
  Report Type: 
  Country: None (occurrence: None)
  Receive Date: 20090623
  Receipt Date: 20090615
  Transmission Date: 20091009
  Serious: Yes (Congenital Anomaly)
  Sender: FDA-Public Use
  Company Number: A0680592A

PATIENT
  Sex: Female

DRUGS (5)
  1. PAROXETINE HCL [Suspect]
     Indication: ANXIETY
     Dates: start: 20060101, end: 20070101
  2. PAXIL [Suspect]
  3. VITAMIN TAB [Concomitant]
  4. ZOLOFT [Concomitant]
     Dates: start: 20060609
  5. TYLENOL (CAPLET) [Concomitant]

REACTIONS (3)
  - CARDIAC MURMUR [None]
  - CONGENITAL ANOMALY [None]
  - DRUG EXPOSURE DURING PREGNANCY [None]
